FAERS Safety Report 18520430 (Version 1)
Quarter: 2020Q4

REPORT INFORMATION
  Report Type: Spontaneous
  Country: CN (occurrence: CN)
  Receive Date: 20201119
  Receipt Date: 20201119
  Transmission Date: 20210114
  Serious: No
  Sender: FDA-Public Use
  Company Number: CN-LUPIN PHARMACEUTICALS INC.-2020-07178

PATIENT
  Age: 14 Year
  Sex: Male

DRUGS (6)
  1. LINEZOLID. [Suspect]
     Active Substance: LINEZOLID
     Indication: PNEUMONIA STAPHYLOCOCCAL
     Dosage: 600 MILLIGRAM, BID (TOTAL 13.6 G AND FORMULATION: INJECTION)
     Route: 042
     Dates: start: 20191222, end: 20200102
  2. GLUCOSE [Concomitant]
     Active Substance: DEXTROSE
     Indication: VEHICLE SOLUTION USE
     Dosage: UNK, BID
     Route: 042
     Dates: start: 20191222, end: 20200102
  3. TERBUTALINE [Concomitant]
     Active Substance: TERBUTALINE
     Indication: PNEUMONIA STAPHYLOCOCCAL
     Dosage: 5 MILLILITER, TID (NEBULISATION)
  4. LINEZOLID. [Suspect]
     Active Substance: LINEZOLID
     Dosage: UNK (FRMULATION: TABLET)
     Route: 048
     Dates: start: 20200103, end: 20200121
  5. VANCOMYCIN [Suspect]
     Active Substance: VANCOMYCIN
     Indication: PNEUMONIA STAPHYLOCOCCAL
     Dosage: 1 GRAM, BID (EVERY 12 HRS) (FORMULATION: INJECTION)
     Route: 042
     Dates: start: 20191221
  6. ACETYLCYSTEINE. [Concomitant]
     Active Substance: ACETYLCYSTEINE
     Indication: PNEUMONIA STAPHYLOCOCCAL
     Dosage: 3 MILLILITER, TID (NEBULISATION)

REACTIONS (3)
  - Trichoglossia [Recovered/Resolved]
  - Pruritus [Recovered/Resolved]
  - Rash [Recovered/Resolved]

NARRATIVE: CASE EVENT DATE: 20191221
